FAERS Safety Report 15347099 (Version 2)
Quarter: 2018Q3

REPORT INFORMATION
  Report Type: Report from Study
  Country: US (occurrence: US)
  Receive Date: 20180904
  Receipt Date: 20180905
  Transmission Date: 20181010
  Serious: Yes (Death)
  Sender: FDA-Public Use
  Company Number: US-PFIZER INC-2018353362

PATIENT

DRUGS (6)
  1. NORMAL SALINE [Concomitant]
     Active Substance: SODIUM CHLORIDE
     Dosage: 1 L, UNK
  2. ETOPOSIDE. [Suspect]
     Active Substance: ETOPOSIDE
     Indication: LYMPHOMA
     Dosage: 40 MG/M2, CYCLIC (DAYS 1?4)
     Route: 042
  3. PLATINOL [Suspect]
     Active Substance: CISPLATIN
     Indication: LYMPHOMA
     Dosage: 25 MG/M2 (TOTAL 100 MG/M2), CYCLIC (DAYS 1?4, CONTINUOUS INFUSION)
     Route: 042
  4. CYTARABINE. [Suspect]
     Active Substance: CYTARABINE
     Indication: LYMPHOMA
     Dosage: 2000 MG/M2, CYCLIC (DAY 5)
     Route: 042
  5. SOLU?MEDROL [Suspect]
     Active Substance: METHYLPREDNISOLONE SODIUM SUCCINATE
     Indication: LYMPHOMA
     Dosage: 250?500 MG, CYCLIC (DAYS 1?5)
     Route: 042
  6. MANNITOL. [Concomitant]
     Active Substance: MANNITOL
     Dosage: 25 TO 50 G, DAILY

REACTIONS (1)
  - Sepsis [Fatal]
